FAERS Safety Report 4853097-9 (Version None)
Quarter: 2005Q4

REPORT INFORMATION
  Report Type: 
  Country: None (occurrence: None)
  Receive Date: 20051212
  Receipt Date: 20051128
  Transmission Date: 20060501
  Serious: No
  Sender: FDA-Public Use
  Company Number: US_0507119898

PATIENT
  Age: 41 Year
  Sex: Male
  Weight: 107 kg

DRUGS (7)
  1. ZYPREXA [Suspect]
     Indication: SCHIZOPHRENIA
     Dosage: SEE IMAGE
     Route: 048
     Dates: start: 20030203, end: 20040127
  2. ZYPREXA [Suspect]
     Indication: SCHIZOPHRENIA
     Dosage: SEE IMAGE
     Route: 048
     Dates: start: 19990101
  3. ZYPREXA [Suspect]
     Indication: SCHIZOPHRENIA
     Dosage: SEE IMAGE
     Route: 048
     Dates: start: 20040127
  4. NEURONTIN [Concomitant]
  5. PROTONIX [Concomitant]
  6. NEXIUM [Concomitant]
  7. CLONAZEPAM [Concomitant]

REACTIONS (5)
  - DEPRESSION [None]
  - DIABETES MELLITUS [None]
  - GASTRITIS VIRAL [None]
  - GASTROINTESTINAL HAEMORRHAGE [None]
  - MACROCYTOSIS [None]
